FAERS Safety Report 5665033-6 (Version None)
Quarter: 2008Q1

REPORT INFORMATION
  Report Type: 
  Country: None (occurrence: None)
  Receive Date: 20080314
  Receipt Date: 20080304
  Transmission Date: 20080703
  Serious: Yes (Hospitalization)
  Sender: FDA-Public Use
  Company Number: FR-PFIZER INC-2008020676

PATIENT
  Age: 87 Year
  Sex: Female

DRUGS (6)
  1. LYRICA [Suspect]
     Indication: NEURALGIA
     Route: 048
     Dates: start: 20070920, end: 20071010
  2. FLUOXETINE [Concomitant]
     Route: 048
  3. TRAMADOL HYDROCHLORIDE AND ACETAMINOPHEN [Concomitant]
     Route: 048
  4. ESOMEPRAZOLE MAGNESIUM [Concomitant]
     Route: 048
  5. RISEDRONATE SODIUM [Concomitant]
     Route: 048
  6. AMLODIPINE [Concomitant]

REACTIONS (1)
  - HYPERTHERMIA MALIGNANT [None]
